FAERS Safety Report 6611287-9 (Version None)
Quarter: 2010Q1

REPORT INFORMATION
  Report Type: 
  Country: None (occurrence: None)
  Receive Date: 20100301
  Receipt Date: 20100301
  Transmission Date: 20100710
  Serious: No
  Sender: FDA-Public Use
  Company Number: None

PATIENT
  Sex: Male
  Weight: 90.7194 kg

DRUGS (1)
  1. AZOR [Suspect]
     Indication: BLOOD PRESSURE DECREASED
     Dates: start: 20100102, end: 20100202

REACTIONS (1)
  - PRURITUS [None]
